FAERS Safety Report 4510629-8 (Version None)
Quarter: 2004Q4

REPORT INFORMATION
  Report Type: 
  Country: None (occurrence: None)
  Receive Date: 20041122
  Receipt Date: 20041108
  Transmission Date: 20050328
  Serious: Yes (Hospitalization)
  Sender: FDA-Public Use
  Company Number: 29701

PATIENT
  Age: 6 Year
  Sex: Male

DRUGS (1)
  1. CYCLOGYL [Suspect]
     Dosage: OPHT
     Route: 047

REACTIONS (1)
  - SOMNOLENCE [None]
